FAERS Safety Report 12193986 (Version 2)
Quarter: 2016Q2

REPORT INFORMATION
  Report Type: Spontaneous
  Country: US (occurrence: US)
  Receive Date: 20160321
  Receipt Date: 20160627
  Transmission Date: 20160815
  Serious: Yes (Hospitalization)
  Sender: FDA-Public Use
  Company Number: US-BEH-2016060106

PATIENT
  Sex: Female
  Weight: 86.18 kg

DRUGS (17)
  1. SOLOSTAR [Concomitant]
     Active Substance: DEVICE
  2. PROVENTIL [Concomitant]
     Active Substance: ALBUTEROL
  3. CLARITIN [Concomitant]
     Active Substance: LORATADINE
  4. HIZENTRA [Suspect]
     Active Substance: HUMAN IMMUNOGLOBULIN G
     Indication: IMMUNODEFICIENCY COMMON VARIABLE
     Dosage: ON HIZENTRA FOR 3 YEARS
     Route: 058
  5. DIPHENHYDRAMINE. [Concomitant]
     Active Substance: DIPHENHYDRAMINE
  6. L-M-X [Concomitant]
  7. HUMALOG [Concomitant]
     Active Substance: INSULIN LISPRO
  8. ACETAMINOPHEN. [Concomitant]
     Active Substance: ACETAMINOPHEN
  9. LANTUS [Concomitant]
     Active Substance: INSULIN GLARGINE
  10. LEVAQUIN [Concomitant]
     Active Substance: LEVOFLOXACIN
  11. SINGULAIR [Concomitant]
     Active Substance: MONTELUKAST SODIUM
  12. THEOPHYLLINE [Concomitant]
     Active Substance: THEOPHYLLINE ANHYDROUS
  13. KLOR-CON [Concomitant]
     Active Substance: POTASSIUM CHLORIDE
  14. EPIPEN [Concomitant]
     Active Substance: EPINEPHRINE
  15. PREDNISONE. [Concomitant]
     Active Substance: PREDNISONE
  16. LEVOTHYROXINE. [Concomitant]
     Active Substance: LEVOTHYROXINE
  17. MICARDIS [Concomitant]
     Active Substance: TELMISARTAN

REACTIONS (1)
  - Pneumonia [Recovering/Resolving]
